FAERS Safety Report 17666643 (Version 1)
Quarter: 2020Q2

REPORT INFORMATION
  Report Type: Other
  Country: AE (occurrence: AE)
  Receive Date: 20200414
  Receipt Date: 20200414
  Transmission Date: 20200713
  Serious: Yes (Life-Threatening, Hospitalization, Disabling, Congenital Anomaly)
  Sender: FDA-Public Use
  Company Number: AE-NOSTRUM LABORATORIES, INC.-2082846

PATIENT
  Sex: Female

DRUGS (2)
  1. CARBAMAZEPINE EXTENDED-RELEASE [Suspect]
     Active Substance: CARBAMAZEPINE
     Indication: EPILEPSY
     Route: 048
  2. LAMOTRIGINE. [Concomitant]
     Active Substance: LAMOTRIGINE
     Route: 048

REACTIONS (3)
  - Holoprosencephaly [Unknown]
  - Multiple congenital abnormalities [Unknown]
  - Cleft lip and palate [Unknown]
